FAERS Safety Report 18467699 (Version 1)
Quarter: 2020Q4

REPORT INFORMATION
  Report Type: Spontaneous
  Country: US (occurrence: US)
  Receive Date: 20201104
  Receipt Date: 20201104
  Transmission Date: 20210114
  Serious: Yes (Hospitalization)
  Sender: FDA-Public Use
  Company Number: None

PATIENT
  Age: 66 Year
  Sex: Male
  Weight: 60 kg

DRUGS (1)
  1. LOSARTAN (LOSARTAN 25MG TAB) [Suspect]
     Active Substance: LOSARTAN
     Indication: HYPERTENSION

REACTIONS (1)
  - Hyperkalaemia [None]
